FAERS Safety Report 22941532 (Version 2)
Quarter: 2023Q4

REPORT INFORMATION
  Report Type: Spontaneous
  Country: US (occurrence: US)
  Receive Date: 20230914
  Receipt Date: 20231222
  Transmission Date: 20240109
  Serious: No
  Sender: FDA-Public Use
  Company Number: US-BRISTOL-MYERS SQUIBB COMPANY-2023-128975

PATIENT
  Age: 49 Year
  Sex: Female

DRUGS (1)
  1. LENALIDOMIDE [Suspect]
     Active Substance: LENALIDOMIDE
     Indication: Thrombocytosis
     Dosage: TAKE 1 CAPSULE BY MOUTH DAILY FOR 21
     Route: 048

REACTIONS (2)
  - Off label use [Unknown]
  - Product distribution issue [Unknown]
